FAERS Safety Report 8910110 (Version 2)
Quarter: 2013Q2

REPORT INFORMATION
  Report Type: Spontaneous
  Country: GB (occurrence: GB)
  Receive Date: 20121115
  Receipt Date: 20130621
  Transmission Date: 20140414
  Serious: Yes (Disabling)
  Sender: FDA-Public Use
  Company Number: GB-009507513-1211GBR005563

PATIENT
  Age: 48 Year
  Sex: Male

DRUGS (10)
  1. ALENDRONATE SODIUM [Suspect]
     Indication: OSTEOPOROSIS PROPHYLAXIS
     Dosage: 70 MG, QW
     Route: 048
     Dates: start: 20120528
  2. ADCAL-D3 [Suspect]
     Indication: OSTEOPOROSIS PROPHYLAXIS
     Dosage: 1 DF, BID
     Route: 048
     Dates: start: 20120414
  3. AZATHIOPRINE [Suspect]
     Indication: PEMPHIGUS
     Dosage: 75 MG, BID
     Route: 048
     Dates: start: 20120607
  4. LANSOPRAZOLE [Suspect]
     Indication: PROPHYLAXIS AGAINST GASTROINTESTINAL ULCER
     Dosage: 15 MG, QD
     Route: 048
     Dates: start: 20120528
  5. PREDNISOLONE [Suspect]
     Indication: PEMPHIGUS
     Dosage: 10 MG, BID
     Route: 048
     Dates: start: 20120518
  6. PREDNISOLONE [Suspect]
     Dosage: 40 MG, QD
     Route: 048
  7. BETNOVATE C [Concomitant]
     Dosage: UNK
     Route: 061
     Dates: start: 20120711
  8. CORSODYL [Concomitant]
     Indication: PEMPHIGUS
     Dosage: 10 ML, BID
     Route: 048
     Dates: start: 20120518, end: 20120601
  9. DERMOL (BENZALKONIUM CHLORIDE (+) CHLORHEXIDINE HYDROCHLORIDE (+) ISOP [Concomitant]
     Dosage: UNK
     Route: 061
     Dates: start: 20120614
  10. DERMOVATE [Concomitant]
     Dosage: UNK
     Route: 061
     Dates: start: 20120711

REACTIONS (3)
  - Trismus [Unknown]
  - Temporomandibular joint syndrome [Unknown]
  - Tremor [Unknown]
